FAERS Safety Report 9013682 (Version 1)
Quarter: 2013Q1

REPORT INFORMATION
  Report Type: Spontaneous
  Country: IT (occurrence: IT)
  Receive Date: 20130115
  Receipt Date: 20130115
  Transmission Date: 20140127
  Serious: Yes (Other)
  Sender: FDA-Public Use
  Company Number: PHHY2013IT002519

PATIENT
  Age: 20 Year
  Sex: Female

DRUGS (1)
  1. SANDIMMUN NEORAL / OL [Suspect]

REACTIONS (1)
  - Road traffic accident [Unknown]
